FAERS Safety Report 21647441 (Version 1)
Quarter: 2022Q4

REPORT INFORMATION
  Report Type: Other
  Country: US (occurrence: None)
  Receive Date: 20221128
  Receipt Date: 20221128
  Transmission Date: 20230112
  Serious: No
  Sender: FDA-Public Use
  Company Number: US-ROCHE-3225205

PATIENT
  Age: 61 Year
  Sex: Male

DRUGS (1)
  1. OCREVUS [Suspect]
     Active Substance: OCRELIZUMAB
     Indication: Primary progressive multiple sclerosis
     Dosage: DOS: 15/MAY/2018, 29/MAY/2018, 28/MAY/2019, 17/JUL/2020, 04/JAN/2021, 27/JUL/2021, 24/JAN/2022, 25/J
     Route: 065

REACTIONS (1)
  - COVID-19 [Unknown]
